FAERS Safety Report 4566681-7 (Version None)
Quarter: 2005Q1

REPORT INFORMATION
  Report Type: 
  Country: None (occurrence: None)
  Receive Date: 20050201
  Receipt Date: 20041126
  Transmission Date: 20050727
  Serious: Yes (Disabling, Other)
  Sender: FDA-Public Use
  Company Number: PHFR2004IE04416

PATIENT
  Age: 22 Year
  Sex: Male

DRUGS (2)
  1. VENLAFAXINE HCL [Concomitant]
     Indication: DEPRESSED MOOD
     Dosage: 225MG/DAY
     Route: 048
     Dates: start: 20021001
  2. CLOZARIL [Suspect]
     Indication: SCHIZOPHRENIA
     Dosage: 400MG/DAY
     Route: 048
     Dates: start: 20040301

REACTIONS (4)
  - APATHY [None]
  - BLOOD CORTISOL INCREASED [None]
  - HYPERSOMNIA [None]
  - WEIGHT INCREASED [None]
